FAERS Safety Report 24041375 (Version 1)
Quarter: 2024Q3

REPORT INFORMATION
  Report Type: Spontaneous
  Country: US (occurrence: None)
  Receive Date: 20240702
  Receipt Date: 20240702
  Transmission Date: 20241016
  Serious: Yes (Death)
  Sender: Public
  Company Number: None

PATIENT
  Age: 78 Year
  Sex: Male

DRUGS (10)
  1. LENALIDOMIDE [Suspect]
     Active Substance: LENALIDOMIDE
     Indication: Plasma cell myeloma
     Dosage: FREQUENCY : AS DIRECTED;?
     Route: 048
     Dates: start: 20231116
  2. ACYCLOVIR [Concomitant]
     Active Substance: ACYCLOVIR
  3. ALLOPURINOL [Concomitant]
  4. ATORVASTATIN [Concomitant]
  5. DARZALEX SOL [Concomitant]
  6. DEXAMETHASON [Concomitant]
  7. LEVOFLOXACIN [Concomitant]
  8. METOPROLO SUC [Concomitant]
  9. PANTOPRAZOLE [Concomitant]
  10. PROCHLORPER [Concomitant]

REACTIONS (2)
  - Malignant neoplasm progression [None]
  - Multiple organ dysfunction syndrome [None]

NARRATIVE: CASE EVENT DATE: 20240618
